FAERS Safety Report 23627789 (Version 5)
Quarter: 2024Q3

REPORT INFORMATION
  Report Type: Report from Study
  Country: AU (occurrence: AU)
  Receive Date: 20240313
  Receipt Date: 20240912
  Transmission Date: 20241016
  Serious: Yes (Other)
  Sender: NOVARTIS
  Company Number: AU-002147023-NVSC2024AU004616

PATIENT
  Age: 50 Year
  Sex: Female

DRUGS (6)
  1. KESIMPTA [Suspect]
     Active Substance: OFATUMUMAB
     Indication: Relapsing-remitting multiple sclerosis
     Dosage: 20 MG, QMO (ONCE A MONTH)
     Route: 058
     Dates: start: 20231213
  2. KESIMPTA [Suspect]
     Active Substance: OFATUMUMAB
     Dosage: UNK
     Route: 065
     Dates: start: 20231220
  3. KESIMPTA [Suspect]
     Active Substance: OFATUMUMAB
     Dosage: 20 MG, Q2W (ONCE EVERY TWO WEEKS)
     Route: 058
  4. KESIMPTA [Suspect]
     Active Substance: OFATUMUMAB
     Dosage: UNK
     Route: 065
     Dates: start: 20240115
  5. KESIMPTA [Suspect]
     Active Substance: OFATUMUMAB
     Dosage: 20 MG, QMO (OTHER) EVERY 30 DAYS)
     Route: 058
     Dates: end: 202403
  6. KESIMPTA [Suspect]
     Active Substance: OFATUMUMAB
     Dosage: UNK
     Route: 065
     Dates: start: 20240311

REACTIONS (7)
  - Lower respiratory tract infection [Recovering/Resolving]
  - Pneumonia [Unknown]
  - COVID-19 [Recovering/Resolving]
  - Skin infection [Recovering/Resolving]
  - Malaise [Unknown]
  - Stress [Unknown]
  - Upper respiratory tract infection [Unknown]

NARRATIVE: CASE EVENT DATE: 20240201
